FAERS Safety Report 6311726-7 (Version None)
Quarter: 2009Q3

REPORT INFORMATION
  Report Type: 
  Country: None (occurrence: None)
  Receive Date: 20090813
  Receipt Date: 20090813
  Transmission Date: 20100115
  Serious: Yes (Life-Threatening, Hospitalization, Other)
  Sender: FDA-Public Use
  Company Number: None

PATIENT
  Sex: Female
  Weight: 99.7913 kg

DRUGS (2)
  1. PLAVIX [Suspect]
     Indication: CORONARY ARTERIAL STENT INSERTION
     Dosage: 75 MG 1 DAILY MOUTH
     Route: 048
     Dates: start: 20090609, end: 20090709
  2. TICLOPIDINE (SUB FOR TICLID) [Suspect]
     Indication: CORONARY ARTERIAL STENT INSERTION
     Dosage: 250 MG X2 DAILY MOUTH
     Route: 048
     Dates: start: 20090709, end: 20090716

REACTIONS (6)
  - MALAISE [None]
  - PRURITUS [None]
  - RASH [None]
  - THROAT TIGHTNESS [None]
  - URTICARIA [None]
  - WHITE BLOOD CELL COUNT DECREASED [None]
